FAERS Safety Report 7124839-7 (Version None)
Quarter: 2010Q4

REPORT INFORMATION
  Report Type: 
  Country: None (occurrence: None)
  Receive Date: 20101123
  Receipt Date: 20101123
  Transmission Date: 20110411
  Serious: No
  Sender: FDA-Public Use
  Company Number: None

PATIENT
  Age: 40 Year
  Sex: Female

DRUGS (1)
  1. DOXIL [Suspect]
     Indication: LYMPHOMA
     Dosage: 35MG  IV
     Route: 042
     Dates: start: 20101013, end: 20101013

REACTIONS (3)
  - ANXIETY [None]
  - HYPOXIA [None]
  - INFUSION RELATED REACTION [None]
